APPROVED DRUG PRODUCT: PILOCARPINE HYDROCHLORIDE
Active Ingredient: PILOCARPINE HYDROCHLORIDE
Strength: 5MG
Dosage Form/Route: TABLET;ORAL
Application: A077220 | Product #001 | TE Code: AB
Applicant: LANNETT CO INC
Approved: Oct 14, 2005 | RLD: No | RS: No | Type: RX